FAERS Safety Report 21769086 (Version 2)
Quarter: 2023Q1

REPORT INFORMATION
  Report Type: Report from Study
  Country: US (occurrence: US)
  Receive Date: 20221222
  Receipt Date: 20230214
  Transmission Date: 20230417
  Serious: Yes (Hospitalization, Other)
  Sender: FDA-Public Use
  Company Number: US-ABBVIE-4246653

PATIENT
  Age: 59 Year
  Sex: Male
  Weight: 78.017 kg

DRUGS (7)
  1. HUMIRA [Suspect]
     Active Substance: ADALIMUMAB
     Indication: Product used for unknown indication
     Route: 058
  2. SKYRIZI [Suspect]
     Active Substance: RISANKIZUMAB-RZAA
     Indication: Psoriasis
     Route: 058
     Dates: start: 20220818
  3. VITAMIN D3 [Concomitant]
     Active Substance: CHOLECALCIFEROL
     Indication: Vitamin D deficiency
  4. XANAX [Concomitant]
     Active Substance: ALPRAZOLAM
     Indication: Injury
  5. PROTONIX [Concomitant]
     Active Substance: PANTOPRAZOLE SODIUM
     Indication: Gastrooesophageal reflux disease
  6. VITAMIN B12 [Concomitant]
     Active Substance: CYANOCOBALAMIN
     Indication: Vitamin supplementation
  7. PRIMIDONE [Concomitant]
     Active Substance: PRIMIDONE
     Indication: Injury
     Dosage: 25 MILLIGRAM

REACTIONS (4)
  - Splenic haematoma [Recovered/Resolved]
  - Diarrhoea [Recovered/Resolved]
  - Splenic injury [Unknown]
  - Procedural pain [Unknown]

NARRATIVE: CASE EVENT DATE: 20221103
